FAERS Safety Report 16300668 (Version 1)
Quarter: 2019Q2

REPORT INFORMATION
  Report Type: Spontaneous
  Country: NL (occurrence: NL)
  Receive Date: 20190510
  Receipt Date: 20190510
  Transmission Date: 20190711
  Serious: Yes (Hospitalization)
  Sender: FDA-Public Use
  Company Number: NL-TEVA-2019-NL-1044407

PATIENT
  Age: 53 Year
  Sex: Female
  Weight: 61 kg

DRUGS (2)
  1. DICLOFENAC [Suspect]
     Active Substance: DICLOFENAC
     Indication: MIGRAINE
     Dosage: 2 DAYS 3 TABLETS OF DICLOFENAC USED
     Route: 065
  2. DEXAMETHASON CAPSULE, 4 MG (MILLIGRAM) [Suspect]
     Active Substance: DEXAMETHASONE
     Indication: MIGRAINE
     Dosage: 4 MILLIGRAM DAILY; 1 TABLET PER DAY
     Dates: start: 20190322

REACTIONS (9)
  - Blood pressure fluctuation [Unknown]
  - Fatigue [Unknown]
  - Erythema [Not Recovered/Not Resolved]
  - Burning sensation [Not Recovered/Not Resolved]
  - Chest discomfort [Unknown]
  - Swollen tongue [Unknown]
  - Heart rate abnormal [Unknown]
  - Pain in jaw [Unknown]
  - Hyperventilation [Unknown]

NARRATIVE: CASE EVENT DATE: 20190323
